FAERS Safety Report 12190981 (Version 1)
Quarter: 2016Q1

REPORT INFORMATION
  Report Type: Spontaneous
  Country: US (occurrence: US)
  Receive Date: 20160318
  Receipt Date: 20160318
  Transmission Date: 20160526
  Serious: Yes (Other)
  Sender: FDA-Public Use
  Company Number: US-TEVA-628355USA

PATIENT
  Sex: Female
  Weight: 59.93 kg

DRUGS (2)
  1. DULOXETINE. [Suspect]
     Active Substance: DULOXETINE
     Indication: MUSCULOSKELETAL PAIN
     Route: 065
  2. DULOXETINE. [Suspect]
     Active Substance: DULOXETINE
     Route: 065
     Dates: start: 20151221, end: 20160117

REACTIONS (11)
  - Throat tightness [Unknown]
  - Bradyphrenia [Unknown]
  - Dizziness [Unknown]
  - Weight fluctuation [Unknown]
  - Dysgeusia [Unknown]
  - Gait disturbance [Unknown]
  - Throat irritation [Unknown]
  - Speech disorder [Not Recovered/Not Resolved]
  - Insomnia [Unknown]
  - Decreased appetite [Unknown]
  - Feeling abnormal [Unknown]
